FAERS Safety Report 9867272 (Version 1)
Quarter: 2014Q1

REPORT INFORMATION
  Report Type: Spontaneous
  Country: US (occurrence: None)
  Receive Date: 20140131
  Receipt Date: 20140131
  Transmission Date: 20141002
  Serious: Yes (Death)
  Sender: FDA-Public Use
  Company Number: 2014AP000570

PATIENT
  Age: 74 Year
  Sex: Male

DRUGS (10)
  1. DILT-XR [Suspect]
     Dosage: ; PO
     Route: 048
  2. GLIPIZIDE TABLETS [Suspect]
     Dosage: ; PO
     Route: 048
  3. METFORMIN [Suspect]
     Dosage: ; PO
     Route: 048
  4. OMEPRAZOLE DELAYED-RELEASED [Suspect]
     Dosage: ; PO
     Route: 048
  5. FLUOXETINE HYDROCHLORIDE ORAL SOLUTION [Suspect]
     Dosage: ; PO
     Route: 048
  6. ATENOLOL [Suspect]
     Dosage: ; PO
     Route: 048
  7. HYDROCHLOROTHIAZIDE [Suspect]
     Dosage: ; PO
     Route: 048
  8. LISINOPRIL TABLETS [Suspect]
     Dosage: ; PO
     Route: 048
  9. PIOGLITAZONE [Suspect]
     Dosage: ; PO
     Route: 048
  10. ROVUSTATIN [Suspect]
     Dosage: ; PO
     Route: 048

REACTIONS (1)
  - Completed suicide [None]
